FAERS Safety Report 9316864 (Version 1)
Quarter: 2013Q2

REPORT INFORMATION
  Report Type: Spontaneous
  Country: US (occurrence: US)
  Receive Date: 20130530
  Receipt Date: 20130530
  Transmission Date: 20140414
  Serious: No
  Sender: FDA-Public Use
  Company Number: US-NOVEN-12US004478

PATIENT
  Age: 14 Year
  Sex: Female

DRUGS (5)
  1. DAYTRANA [Suspect]
     Indication: DEPRESSION
     Dosage: 10 MG, QD
     Route: 062
     Dates: start: 20120413
  2. DAYTRANA [Suspect]
     Indication: ANXIETY
  3. CLARITIN                           /00917501/ [Concomitant]
     Indication: HYPERSENSITIVITY
     Dosage: 10 MG, UNK
     Route: 048
  4. SINGULAIR [Concomitant]
     Indication: HYPERSENSITIVITY
     Route: 048
  5. FLONASE [Concomitant]
     Indication: HYPERSENSITIVITY

REACTIONS (6)
  - Application site burn [Not Recovered/Not Resolved]
  - Application site erythema [Not Recovered/Not Resolved]
  - Application site pain [Not Recovered/Not Resolved]
  - Drug administered at inappropriate site [Not Recovered/Not Resolved]
  - Drug prescribing error [Not Recovered/Not Resolved]
  - Off label use [Not Recovered/Not Resolved]
